FAERS Safety Report 7639403-0 (Version None)
Quarter: 2011Q3

REPORT INFORMATION
  Report Type: 
  Country: None (occurrence: None)
  Receive Date: 20110727
  Receipt Date: 20110719
  Transmission Date: 20111222
  Serious: Yes (Other)
  Sender: FDA-Public Use
  Company Number: US-US-EMD SERONO, INC.-7072268

PATIENT
  Sex: Male

DRUGS (2)
  1. REBIF [Suspect]
     Indication: PRODUCT USED FOR UNKNOWN INDICATION
     Route: 058
     Dates: start: 20100816
  2. EXCEDRIN (MIGRAINE) [Concomitant]
     Indication: ARTHRITIS

REACTIONS (3)
  - INFLUENZA LIKE ILLNESS [None]
  - INTERVERTEBRAL DISC OPERATION [None]
  - MEMORY IMPAIRMENT [None]
